FAERS Safety Report 18286482 (Version 2)
Quarter: 2020Q3

REPORT INFORMATION
  Report Type: Spontaneous
  Country: US (occurrence: US)
  Receive Date: 20200920
  Receipt Date: 20200928
  Transmission Date: 20201103
  Serious: No
  Sender: FDA-Public Use
  Company Number: US-CELLTRION INC.-2020US027019

PATIENT

DRUGS (20)
  1. OMEPRAZOLE. [Concomitant]
     Active Substance: OMEPRAZOLE
     Dosage: 20 MILLIGRAM, DAILY AT 0900H
     Route: 048
  2. BENADRYL ALLERGY [Concomitant]
     Active Substance: DIPHENHYDRAMINE HYDROCHLORIDE
     Dosage: 25 MILLIGRAM PRIOR TO EVERY INFLECTRA INFUSION AT 0, 2, 6, 14 AND THEN Q8W THEREAFTER
     Route: 048
  3. FAMOTIDINE. [Concomitant]
     Active Substance: FAMOTIDINE
     Indication: NAUSEA
  4. REMICADE [Concomitant]
     Active Substance: INFLIXIMAB
     Indication: CROHN^S DISEASE
     Dosage: 5 MG/KG ADMINISTER FOR WEEK 14, ADMINISTER OVER 2 HRS
  5. TYLENOL [Concomitant]
     Active Substance: ACETAMINOPHEN
     Dosage: 500 MG,TAKEN 30 MIN PRIOR TO BIOLOGIC INFUSION
     Dates: start: 20200811
  6. XYZAL [Concomitant]
     Active Substance: LEVOCETIRIZINE DIHYDROCHLORIDE
     Dosage: 5 MILLIGRAM, DAILY AT 0900H
     Route: 048
  7. BENADRYL [Concomitant]
     Active Substance: DIPHENHYDRAMINE HYDROCHLORIDE
     Dosage: 25 MILLIGRAM, TAKEN 30 MIN PRIOR TO BIOLOGIC INFUSION
     Dates: start: 20200811
  8. TYLENOL EXTRA STRENGTH [Concomitant]
     Active Substance: ACETAMINOPHEN
     Indication: CROHN^S DISEASE
     Dosage: 500 MG ORALLY PRIOR TO EVERY INFLECTRA INFUSION AT WEEK O, 2, 6, 14 AND Q8W THEREAFTER
     Route: 048
  9. PREDNISONE. [Concomitant]
     Active Substance: PREDNISONE
     Dosage: 5 MILLIGRAM, AS DIRECTED
     Route: 048
  10. INFLECTRA [Suspect]
     Active Substance: INFLIXIMAB-DYYB
     Indication: CROHN^S DISEASE
     Dosage: 400MG MIXED WITH 250ML OF SODIUM CHLORIDE ADMINISTERED INTRAVENOUSLY ON WEEKS 0, 2, AND 6.
     Route: 042
     Dates: start: 20200630, end: 20200811
  11. SODIUM CHLORIDE. [Suspect]
     Active Substance: SODIUM CHLORIDE
     Indication: CROHN^S DISEASE
     Dosage: 250ML MIXED WITH 400MG OF INFLECTRA FOR INFUSION ADMINISTERED INTRAVENOUSLY ON WEEKS 0, 2, AND 6.
     Route: 042
     Dates: start: 20200630, end: 20200811
  12. HYDROCORTISONE. [Concomitant]
     Active Substance: HYDROCORTISONE
     Dosage: 1 APPLICATION RECTALLY TWICE DAILY FOR 14 DAYS
     Route: 054
  13. PENTASA [Concomitant]
     Active Substance: MESALAMINE
     Dosage: 1000 MILLIGRAM, TID (0900H, 1500H, 2100H) FOR 30 DAYS
     Route: 048
  14. MULTIVITAMINS [VITAMINS NOS] [Concomitant]
     Active Substance: VITAMINS
     Dosage: 1 DOSAGE FORM, EVERY MORNING
     Route: 048
  15. FAMOTIDINE. [Concomitant]
     Active Substance: FAMOTIDINE
     Indication: GASTROOESOPHAGEAL REFLUX DISEASE
     Dosage: 40 MILLIGRAM AT BEDTIME, PRN FOR GERD OR NAUSEA
     Route: 048
  16. LACTOBACILLUS [Concomitant]
     Active Substance: LACTOBACILLUS ACIDOPHILUS
     Dosage: 3,000 MMU CELLS DAILY AT 0900H
     Route: 048
  17. NORGESTIMATE / ETHINYL ESTRADIOL [Concomitant]
     Dosage: 1 DOSAGE FORM, DAILY AT 0900H
     Route: 048
  18. FISH OIL OMEGA 3 [Concomitant]
     Active Substance: FISH OIL
     Dosage: 1000 MILLIGRAM, DAILY
     Route: 048
  19. VITAMIN C [Concomitant]
     Active Substance: ASCORBIC ACID
     Dosage: 100 MG, DAILY AT 0900H
     Route: 048
  20. MESALAMINE. [Concomitant]
     Active Substance: MESALAMINE
     Indication: INFLAMMATORY BOWEL DISEASE
     Dosage: 1 GRAM, DAILY AS NEEDED FOR IBD
     Route: 054

REACTIONS (3)
  - Overdose [Unknown]
  - Therapy change [Not Recovered/Not Resolved]
  - Infusion related reaction [Unknown]

NARRATIVE: CASE EVENT DATE: 20200811
